FAERS Safety Report 6305404-8 (Version None)
Quarter: 2009Q3

REPORT INFORMATION
  Report Type: 
  Country: None (occurrence: None)
  Receive Date: 20090811
  Receipt Date: 20090804
  Transmission Date: 20100115
  Serious: Yes (Hospitalization)
  Sender: FDA-Public Use
  Company Number: JP-GENENTECH-288193

PATIENT
  Age: 61 Year
  Sex: Female

DRUGS (10)
  1. RITUXAN [Suspect]
     Indication: ORGAN TRANSPLANT
     Dosage: 550 MG, UNK
     Route: 042
     Dates: start: 20090210, end: 20090211
  2. MENATETRANONE [Concomitant]
     Indication: DRUG USE FOR UNKNOWN INDICATION
  3. MUCOSTA [Concomitant]
     Indication: DRUG USE FOR UNKNOWN INDICATION
  4. URSO 250 [Concomitant]
     Indication: DRUG USE FOR UNKNOWN INDICATION
  5. LIVACT [Concomitant]
     Indication: DRUG USE FOR UNKNOWN INDICATION
  6. BEZATOL [Concomitant]
     Indication: DRUG USE FOR UNKNOWN INDICATION
  7. LACTULOSE [Concomitant]
     Indication: DRUG USE FOR UNKNOWN INDICATION
  8. PARIET [Concomitant]
     Indication: DRUG USE FOR UNKNOWN INDICATION
  9. ACTONEL [Concomitant]
     Indication: DRUG USE FOR UNKNOWN INDICATION
  10. AMINOLEBAN [Concomitant]
     Indication: DRUG USE FOR UNKNOWN INDICATION

REACTIONS (2)
  - DISSEMINATED INTRAVASCULAR COAGULATION [None]
  - SEPSIS [None]
